FAERS Safety Report 24684377 (Version 1)
Quarter: 2024Q4

REPORT INFORMATION
  Report Type: Spontaneous
  Country: US (occurrence: US)
  Receive Date: 20241202
  Receipt Date: 20241202
  Transmission Date: 20250115
  Serious: No
  Sender: ASTELLAS
  Company Number: US-ASTELLAS-2024-AER-020425

PATIENT
  Age: 6 Decade
  Sex: Female

DRUGS (2)
  1. VEOZAH [Suspect]
     Active Substance: FEZOLINETANT
     Indication: Product used for unknown indication
     Dosage: UNKNOWN DOSE ROUTE AND FREQUENCY
     Route: 065
  2. VEOZAH [Suspect]
     Active Substance: FEZOLINETANT
     Dosage: UNKNOWN DOSE ROUTE AND FREQUENCY
     Route: 065

REACTIONS (1)
  - Rash [Unknown]
